FAERS Safety Report 7699915-0 (Version None)
Quarter: 2011Q3

REPORT INFORMATION
  Report Type: 
  Country: None (occurrence: None)
  Receive Date: 20110822
  Receipt Date: 20110810
  Transmission Date: 20111222
  Serious: Yes (Other)
  Sender: FDA-Public Use
  Company Number: AU-JNJFOC-20110207269

PATIENT
  Sex: Female

DRUGS (6)
  1. REMICADE [Suspect]
     Indication: UVEITIS
     Dosage: POST DELIVERY OF HEALTHY MALE INFANT
     Route: 042
     Dates: start: 20110810
  2. REMICADE [Suspect]
     Dosage: POST DELIVERY OF HEALTHY MALE INFANT
     Route: 042
     Dates: start: 20110810
  3. REMICADE [Suspect]
     Indication: ANKYLOSING SPONDYLITIS
     Dosage: 34 WEEKS PREGNANT
     Route: 042
     Dates: start: 20110601
  4. REMICADE [Suspect]
     Dosage: 34 WEEKS PREGNANT
     Route: 042
     Dates: start: 20110601
  5. REMICADE [Suspect]
     Dosage: POST DELIVERY OF HEALTHY MALE INFANT
     Route: 042
     Dates: start: 20110810
  6. REMICADE [Suspect]
     Indication: JUVENILE ARTHRITIS
     Dosage: 34 WEEKS PREGNANT
     Route: 042
     Dates: start: 20110601

REACTIONS (8)
  - HEAT STROKE [None]
  - VISION BLURRED [None]
  - DRUG INEFFECTIVE [None]
  - URINARY TRACT INFECTION [None]
  - ARTHRALGIA [None]
  - CAESAREAN SECTION [None]
  - EYE PAIN [None]
  - MATERNAL EXPOSURE DURING PREGNANCY [None]
